FAERS Safety Report 8398179-2 (Version None)
Quarter: 2012Q2

REPORT INFORMATION
  Report Type: 
  Country: None (occurrence: None)
  Receive Date: 20120531
  Receipt Date: 20120524
  Transmission Date: 20120825
  Serious: Yes (Other)
  Sender: FDA-Public Use
  Company Number: BR-ABBOTT-12P-020-0916142-00

PATIENT
  Sex: Female
  Weight: 55.5 kg

DRUGS (4)
  1. HUMIRA [Suspect]
     Indication: RHEUMATOID ARTHRITIS
     Dates: start: 20070122, end: 20091006
  2. LEFLUNOMIDE [Concomitant]
     Indication: PRODUCT USED FOR UNKNOWN INDICATION
     Dosage: 20MG DAILY
     Dates: start: 20001101, end: 20060401
  3. METHOTREXATE [Concomitant]
     Dosage: 15MG OR 7.5MG PER WEEK
     Dates: start: 20060401, end: 20091101
  4. RITUXIMAB [Concomitant]
     Indication: RHEUMATOID ARTHRITIS
     Dates: start: 20100701

REACTIONS (4)
  - INJECTION SITE EXTRAVASATION [None]
  - NODAL MARGINAL ZONE B-CELL LYMPHOMA [None]
  - NON-HODGKIN'S LYMPHOMA [None]
  - IMMUNOSUPPRESSION [None]
